FAERS Safety Report 11348558 (Version 1)
Quarter: 2015Q3

REPORT INFORMATION
  Report Type: Spontaneous
  Country: US (occurrence: US)
  Receive Date: 20150806
  Receipt Date: 20150806
  Transmission Date: 20151125
  Serious: Yes (Other)
  Sender: FDA-Public Use
  Company Number: US-GLAXOSMITHKLINE INC.-US2015GSK112997

PATIENT

DRUGS (1)
  1. TANZEUM [Suspect]
     Active Substance: ALBIGLUTIDE
     Indication: DIABETES MELLITUS
     Dosage: UNK, SINGLE
     Route: 042
     Dates: start: 201507

REACTIONS (4)
  - Micturition disorder [Unknown]
  - Pruritus [Unknown]
  - Renal impairment [Unknown]
  - Drug ineffective [Unknown]
